FAERS Safety Report 9766705 (Version 2)
Quarter: 2014Q1

REPORT INFORMATION
  Report Type: Spontaneous
  Country: GB (occurrence: GB)
  Receive Date: 20131217
  Receipt Date: 20140108
  Transmission Date: 20141002
  Serious: Yes (Hospitalization, Congenital Anomaly, Other)
  Sender: FDA-Public Use
  Company Number: GB-DRREDDYS-GER/UKI/13/0036343

PATIENT
  Sex: Male
  Weight: 3.4 kg

DRUGS (14)
  1. OLANZAPINE [Suspect]
     Indication: PRODUCT USED FOR UNKNOWN INDICATION
     Route: 064
     Dates: start: 20120112, end: 20120114
  2. CHLORPROMAZINE [Suspect]
     Indication: PRODUCT USED FOR UNKNOWN INDICATION
     Route: 064
     Dates: start: 20111215, end: 20111219
  3. CHLORPROMAZINE [Suspect]
     Route: 064
     Dates: start: 20120109, end: 20120114
  4. ALCOHOL [Suspect]
     Indication: PRODUCT USED FOR UNKNOWN INDICATION
     Route: 064
  5. CYCLIZINE [Suspect]
     Indication: PRODUCT USED FOR UNKNOWN INDICATION
     Route: 064
     Dates: start: 20111228, end: 20120131
  6. ENTONOX [Suspect]
     Indication: PRODUCT USED FOR UNKNOWN INDICATION
     Route: 064
     Dates: start: 20120718, end: 20120718
  7. HALOPERIDOL [Suspect]
     Indication: PRODUCT USED FOR UNKNOWN INDICATION
     Route: 064
     Dates: start: 20111229, end: 20120109
  8. PROMETHAZINE [Suspect]
     Indication: PRODUCT USED FOR UNKNOWN INDICATION
     Route: 064
     Dates: start: 20111216
  9. RISPERDAL [Suspect]
     Indication: PRODUCT USED FOR UNKNOWN INDICATION
     Route: 064
     Dates: start: 20120221, end: 20120307
  10. RISPERDAL [Suspect]
     Route: 064
     Dates: start: 20120308, end: 20120609
  11. RISPERDAL [Suspect]
     Route: 064
     Dates: start: 20120609, end: 20120821
  12. SENNA LEAF [Suspect]
     Indication: PRODUCT USED FOR UNKNOWN INDICATION
     Route: 064
     Dates: start: 20120116
  13. SYNTOMETRINE [Suspect]
     Indication: PRODUCT USED FOR UNKNOWN INDICATION
     Route: 064
     Dates: start: 20120718, end: 20120718
  14. ZOPICLONE [Suspect]
     Indication: PRODUCT USED FOR UNKNOWN INDICATION
     Route: 064
     Dates: start: 20120210, end: 20120718

REACTIONS (5)
  - Drug withdrawal syndrome [Unknown]
  - Visual impairment [Unknown]
  - Dextrocardia [Unknown]
  - Foetal alcohol syndrome [Unknown]
  - Foetal exposure during pregnancy [Recovered/Resolved]
